FAERS Safety Report 4278174-5 (Version None)
Quarter: 2004Q1

REPORT INFORMATION
  Report Type: 
  Country: None (occurrence: None)
  Receive Date: 20040120
  Receipt Date: 20040109
  Transmission Date: 20041129
  Serious: Yes (Death)
  Sender: FDA-Public Use
  Company Number: 230022K04USA

PATIENT
  Age: 43 Year
  Sex: Male

DRUGS (2)
  1. REBIF [Suspect]
     Indication: MULTIPLE SCLEROSIS
     Dates: start: 20030101
  2. AVONEX [Suspect]
     Indication: MULTIPLE SCLEROSIS
     Dosage: 30 MCG, 1 IN 1 WEEKS,  INTRA-MUSCULAR
     Route: 030
     Dates: start: 20010420, end: 20030101

REACTIONS (5)
  - ATAXIA [None]
  - GUN SHOT WOUND [None]
  - HEAD INJURY [None]
  - MENTAL DISORDER [None]
  - MULTIPLE SCLEROSIS [None]
